FAERS Safety Report 8533033-4 (Version None)
Quarter: 2012Q2

REPORT INFORMATION
  Report Type: 
  Country: None (occurrence: None)
  Receive Date: 20120412
  Receipt Date: 20110111
  Transmission Date: 20120825
  Serious: Yes (Other)
  Sender: FDA-Public Use
  Company Number: PHEH2009US02559

PATIENT
  Sex: Male

DRUGS (11)
  1. AREDIA [Suspect]
     Dosage: UNK
     Dates: start: 19960604
  2. THALIDOMIDE [Concomitant]
  3. FAMOTIDINE [Concomitant]
  4. BIAXIN [Concomitant]
  5. INSULIN (INSULIN) [Concomitant]
  6. ALKERAN [Concomitant]
  7. PROMETHAZINE [Concomitant]
  8. DIAZEPAM [Concomitant]
  9. ZOMETA [Suspect]
     Dosage: UNK
     Dates: start: 20020206
  10. PROCRIT [Concomitant]
  11. DECADRON [Concomitant]

REACTIONS (8)
  - ANXIETY [None]
  - INJURY [None]
  - TOOTHACHE [None]
  - TOOTH DISORDER [None]
  - DISABILITY [None]
  - OSTEONECROSIS OF JAW [None]
  - ANHEDONIA [None]
  - PAIN [None]
